FAERS Safety Report 4448321-0 (Version None)
Quarter: 2004Q3

REPORT INFORMATION
  Report Type: 
  Country: None (occurrence: None)
  Receive Date: 20040913
  Receipt Date: 20040823
  Transmission Date: 20050211
  Serious: Yes (Hospitalization)
  Sender: FDA-Public Use
  Company Number: 2004230141HK

PATIENT
  Age: 50 Year
  Sex: Female
  Weight: 55 kg

DRUGS (5)
  1. CELEBREX [Suspect]
     Indication: BREAST CANCER
     Dosage: 400 MG BID ORAL
     Route: 048
     Dates: start: 20040702
  2. COMPARATOR FLUOURACIL (FLUOROURACIL) INJECTION [Suspect]
     Indication: BREAST CANCER
     Dosage: 738.5 MG CYCLIC (CYCLE 1) IV
     Route: 042
     Dates: start: 20040707
  3. PHARMORUBICIN (EPIRUBICIN HYDROCHLORIDE)POWDER STERILE [Suspect]
     Indication: BREAST CANCER
     Dosage: 147.7 MG CYCLIC IV
     Route: 042
     Dates: start: 20040707
  4. CYCLOPHOSPHAMIDE [Suspect]
     Indication: BREAST CANCER
     Dosage: 738.5 MG CYCLIC IV
     Route: 042
     Dates: start: 20040707
  5. CIMETIDINE [Concomitant]

REACTIONS (2)
  - NEUTROPENIA [None]
  - PHARYNGOLARYNGEAL PAIN [None]
